FAERS Safety Report 9540603 (Version 3)
Quarter: 2014Q2

REPORT INFORMATION
  Report Type: Report from Study
  Country: US (occurrence: US)
  Receive Date: 20130920
  Receipt Date: 20140630
  Transmission Date: 20141212
  Serious: Yes (Life-Threatening, Hospitalization, Other)
  Sender: FDA-Public Use
  Company Number: US-ACTELION-A-NJ2013-88523

PATIENT
  Age: 71 Year
  Sex: Male

DRUGS (1)
  1. TRACLEER [Suspect]
     Indication: PULMONARY ARTERIAL HYPERTENSION
     Dosage: UNK
     Route: 048
     Dates: start: 201206, end: 20140603

REACTIONS (8)
  - Myelodysplastic syndrome [Unknown]
  - Colectomy [Unknown]
  - Bladder repair [Unknown]
  - Abdominal hernia repair [Unknown]
  - Colon fistula repair [Recovering/Resolving]
  - Septic shock [Recovering/Resolving]
  - Urosepsis [Recovering/Resolving]
  - Anaemia [Recovering/Resolving]
